FAERS Safety Report 7048498-7 (Version None)
Quarter: 2010Q4

REPORT INFORMATION
  Report Type: 
  Country: None (occurrence: None)
  Receive Date: 20101007
  Receipt Date: 20101005
  Transmission Date: 20110411
  Serious: Yes (Death, Hospitalization)
  Sender: FDA-Public Use
  Company Number: 2010SP051241

PATIENT
  Age: 78 Year
  Sex: Female
  Weight: 60.6 kg

DRUGS (9)
  1. TEMODAL [Suspect]
     Indication: ACUTE MYELOID LEUKAEMIA
     Dosage: 330 MG; QD; PO
     Route: 048
     Dates: start: 20100921, end: 20100924
  2. PROPRANOLOL [Concomitant]
  3. DIOVAN [Concomitant]
  4. DILTIAZEM HCL [Concomitant]
  5. APO-K [Concomitant]
  6. LORAZEPAM [Concomitant]
  7. HYDROCHLOROTHIAZIDE [Concomitant]
  8. ATROVENT [Concomitant]
  9. APO-SALVENT /00139501/ [Concomitant]

REACTIONS (12)
  - CONFUSIONAL STATE [None]
  - COUGH [None]
  - DYSPNOEA [None]
  - FLUID OVERLOAD [None]
  - HAEMATOCHEZIA [None]
  - HYPONATRAEMIA [None]
  - MARROW HYPERPLASIA [None]
  - MYELODYSPLASTIC SYNDROME [None]
  - PALLOR [None]
  - PANCYTOPENIA [None]
  - RENAL FAILURE ACUTE [None]
  - TUMOUR LYSIS SYNDROME [None]
